FAERS Safety Report 22050671 (Version 1)
Quarter: 2023Q1

REPORT INFORMATION
  Report Type: Spontaneous
  Country: US (occurrence: None)
  Receive Date: 20230228
  Receipt Date: 20230228
  Transmission Date: 20230418
  Serious: Yes (Life-Threatening, Hospitalization, Disabling)
  Sender: FDA-Public Use
  Company Number: None

PATIENT
  Age: 19 Year
  Sex: Female
  Weight: 52.16 kg

DRUGS (1)
  1. AMMONIA INHALANTS [Suspect]
     Active Substance: AMMONIA
     Indication: Product used for unknown indication

REACTIONS (6)
  - Migraine [None]
  - Vision blurred [None]
  - Insomnia [None]
  - Product quality issue [None]
  - Vomiting [None]
  - Dyspnoea [None]
